FAERS Safety Report 4815097-4 (Version None)
Quarter: 2005Q4

REPORT INFORMATION
  Report Type: 
  Country: None (occurrence: None)
  Receive Date: 20051026
  Receipt Date: 20051011
  Transmission Date: 20060501
  Serious: Yes (Death)
  Sender: FDA-Public Use
  Company Number: CA_051008857

PATIENT
  Sex: Female

DRUGS (1)
  1. XIGRIS [Suspect]

REACTIONS (1)
  - DEATH [None]
